FAERS Safety Report 18622829 (Version 1)
Quarter: 2020Q4

REPORT INFORMATION
  Report Type: Spontaneous
  Country: US (occurrence: US)
  Receive Date: 20201216
  Receipt Date: 20201216
  Transmission Date: 20210114
  Serious: No
  Sender: FDA-Public Use
  Company Number: US-MYLANLABS-2020M1099063

PATIENT
  Age: 66 Year
  Sex: Female
  Weight: 58 kg

DRUGS (3)
  1. TYLENOL WITH CODEINE [Concomitant]
     Active Substance: ACETAMINOPHEN\CODEINE PHOSPHATE
     Dosage: UNK
  2. MELOXICAM. [Concomitant]
     Active Substance: MELOXICAM
     Dosage: UNK
  3. LIDOCAINE PATCH [Suspect]
     Active Substance: LIDOCAINE
     Indication: SPINAL COMPRESSION FRACTURE
     Dosage: 5 PERCENT, BID (EVERY 12 HOURS)
     Route: 003

REACTIONS (3)
  - Drug ineffective for unapproved indication [Recovering/Resolving]
  - Product quality issue [Recovering/Resolving]
  - Product adhesion issue [Recovering/Resolving]

NARRATIVE: CASE EVENT DATE: 20201128
